FAERS Safety Report 5066504-6 (Version None)
Quarter: 2006Q3

REPORT INFORMATION
  Report Type: 
  Country: None (occurrence: None)
  Receive Date: 20060801
  Receipt Date: 20060203
  Transmission Date: 20061208
  Serious: Yes (Other)
  Sender: FDA-Public Use
  Company Number: PL-BRISTOL-MYERS SQUIBB COMPANY-13271226

PATIENT
  Age: 54 Year
  Sex: Female

DRUGS (5)
  1. ORENCIA [Suspect]
     Indication: RHEUMATOID ARTHRITIS
     Route: 042
     Dates: start: 20051108
  2. METHOTREXATE [Suspect]
     Route: 048
     Dates: start: 20031212
  3. PANTOPRAZOLE SODIUM [Concomitant]
     Dates: start: 20050405
  4. ALFACALCIDOL [Concomitant]
     Dates: start: 20040907
  5. CALPEROS [Concomitant]
     Dates: start: 20040911

REACTIONS (2)
  - ALANINE AMINOTRANSFERASE INCREASED [None]
  - ASPARTATE AMINOTRANSFERASE INCREASED [None]
